FAERS Safety Report 15429928 (Version 1)
Quarter: 2018Q3

REPORT INFORMATION
  Report Type: Report from Study
  Country: BR (occurrence: BR)
  Receive Date: 20180926
  Receipt Date: 20180926
  Transmission Date: 20181010
  Serious: Yes (Hospitalization, Other)
  Sender: FDA-Public Use
  Company Number: BR-SA-2018SA257738

PATIENT
  Age: 61 Year
  Sex: Male
  Weight: 89 kg

DRUGS (4)
  1. INSULIN GLARGINE [Suspect]
     Active Substance: INSULIN GLARGINE
     Indication: TYPE 2 DIABETES MELLITUS
     Dosage: 96 IU, QD
     Route: 065
     Dates: start: 2016
  2. INSULIN GLULISINE [Suspect]
     Active Substance: INSULIN GLULISINE
     Indication: TYPE 2 DIABETES MELLITUS
     Dosage: 120 IU, TID (BEFORE BREAKFAST, LUNCH, DINNER AND IF NEEDED)
     Route: 058
     Dates: start: 20130914
  3. INSULIN GLARGINE [Suspect]
     Active Substance: INSULIN GLARGINE
     Dosage: 52 IU, BID
     Route: 058
  4. INSULIN GLULISINE [Suspect]
     Active Substance: INSULIN GLULISINE
     Dosage: 42 IU

REACTIONS (7)
  - Injection site haemorrhage [Unknown]
  - Weight decreased [Unknown]
  - Toe amputation [Unknown]
  - Gastrointestinal haemorrhage [Unknown]
  - Blood glucose increased [Unknown]
  - Off label use [Unknown]
  - Product storage error [Unknown]

NARRATIVE: CASE EVENT DATE: 20180914
